FAERS Safety Report 22333867 (Version 1)
Quarter: 2023Q2

REPORT INFORMATION
  Report Type: Spontaneous
  Country: US (occurrence: None)
  Receive Date: 20230516
  Receipt Date: 20230516
  Transmission Date: 20230722
  Serious: Yes (Death)
  Sender: FDA-Public Use
  Company Number: None

PATIENT
  Age: 74 Year
  Sex: Female

DRUGS (1)
  1. XGEVA [Suspect]
     Active Substance: DENOSUMAB
     Indication: Product used for unknown indication
     Dosage: FREQUENCY : MONTHLY;?
     Route: 058
     Dates: start: 202303

REACTIONS (5)
  - Neoplasm malignant [None]
  - Infection [None]
  - Urinary tract infection [None]
  - Clostridium difficile infection [None]
  - Sepsis [None]

NARRATIVE: CASE EVENT DATE: 20230511
